FAERS Safety Report 6655214-7 (Version None)
Quarter: 2010Q1

REPORT INFORMATION
  Report Type: 
  Country: None (occurrence: None)
  Receive Date: 20100324
  Receipt Date: 20100316
  Transmission Date: 20100710
  Serious: Yes (Other)
  Sender: FDA-Public Use
  Company Number: 1000012523

PATIENT
  Age: 25 Year
  Sex: Female

DRUGS (3)
  1. SAVELLA [Suspect]
     Indication: FIBROMYALGIA
     Dosage: 12.5 MG (12.5 MG, 1 IN 1 D),ORAL; 25 MG (12.5 MG,2 IN 1 D), ORAL ;  50 MG (25 MG,2 IN 1 D), ORAL
     Route: 048
     Dates: start: 20100301, end: 20100301
  2. SAVELLA [Suspect]
     Indication: FIBROMYALGIA
     Dosage: 12.5 MG (12.5 MG, 1 IN 1 D),ORAL; 25 MG (12.5 MG,2 IN 1 D), ORAL ;  50 MG (25 MG,2 IN 1 D), ORAL
     Route: 048
     Dates: start: 20100301, end: 20100301
  3. SAVELLA [Suspect]
     Indication: FIBROMYALGIA
     Dosage: 12.5 MG (12.5 MG, 1 IN 1 D),ORAL; 25 MG (12.5 MG,2 IN 1 D), ORAL ;  50 MG (25 MG,2 IN 1 D), ORAL
     Route: 048
     Dates: start: 20100301

REACTIONS (4)
  - FATIGUE [None]
  - PAIN [None]
  - RHABDOMYOLYSIS [None]
  - TREMOR [None]
